FAERS Safety Report 6096144-1 (Version None)
Quarter: 2009Q1

REPORT INFORMATION
  Report Type: 
  Country: None (occurrence: None)
  Receive Date: 20090227
  Receipt Date: 20080915
  Transmission Date: 20090719
  Serious: No
  Sender: FDA-Public Use
  Company Number: A0747498A

PATIENT
  Age: 57 Year
  Sex: Male

DRUGS (4)
  1. LAMICTAL [Suspect]
     Indication: BIPOLAR DISORDER
     Dosage: 1TAB THREE TIMES PER DAY
     Route: 048
     Dates: start: 20080801
  2. LITHOBID [Concomitant]
  3. LEXAPRO [Concomitant]
  4. CLONAZEPAM [Concomitant]

REACTIONS (2)
  - DYSPEPSIA [None]
  - NAUSEA [None]
